FAERS Safety Report 5599734-5 (Version None)
Quarter: 2008Q1

REPORT INFORMATION
  Report Type: 
  Country: None (occurrence: None)
  Receive Date: 20080123
  Receipt Date: 20080116
  Transmission Date: 20080703
  Serious: Yes (Hospitalization)
  Sender: FDA-Public Use
  Company Number: FR-BRISTOL-MYERS SQUIBB COMPANY-14044382

PATIENT
  Age: 98 Year
  Sex: Male

DRUGS (3)
  1. APROVEL [Suspect]
     Indication: HYPERTENSION
  2. HYPERIUM [Suspect]
     Indication: HYPERTENSION
     Dates: end: 20070806
  3. MONO-TILDIEM [Suspect]
     Indication: HYPERTENSION
     Dates: end: 20070801

REACTIONS (1)
  - BRADYCARDIA [None]
